FAERS Safety Report 6528611-8 (Version None)
Quarter: 2010Q1

REPORT INFORMATION
  Report Type: 
  Country: None (occurrence: None)
  Receive Date: 20100106
  Receipt Date: 20091225
  Transmission Date: 20100710
  Serious: Yes (Other)
  Sender: FDA-Public Use
  Company Number: JP-BRISTOL-MYERS SQUIBB COMPANY-14907224

PATIENT
  Age: 43 Year
  Sex: Male

DRUGS (1)
  1. KENACORT [Suspect]
     Dates: start: 20040601, end: 20051201

REACTIONS (4)
  - ARTHRITIS [None]
  - ARTHRITIS BACTERIAL [None]
  - JOINT RANGE OF MOTION DECREASED [None]
  - OSTEONECROSIS [None]
